FAERS Safety Report 23586703 (Version 1)
Quarter: 2024Q1

REPORT INFORMATION
  Report Type: Spontaneous
  Country: US (occurrence: US)
  Receive Date: 20240301
  Receipt Date: 20240301
  Transmission Date: 20240409
  Serious: No
  Sender: FDA-Public Use
  Company Number: US-PFIZER INC-202400052494

PATIENT
  Age: 69 Year
  Sex: Female

DRUGS (1)
  1. IBRANCE [Suspect]
     Active Substance: PALBOCICLIB
     Dosage: 125 MG, DAILY (1 TABLET DAILY ON DAYS 1 THROUGH 21 FOLLOWED BY 7 DAYS OFF EVERY 28 DAYS)
     Dates: start: 20240116

REACTIONS (1)
  - White blood cell count decreased [Unknown]
